FAERS Safety Report 8623192-7 (Version None)
Quarter: 2012Q3

REPORT INFORMATION
  Report Type: 
  Country: None (occurrence: None)
  Receive Date: 20120827
  Receipt Date: 20120821
  Transmission Date: 20120928
  Serious: Yes (Death, Life-Threatening, Hospitalization)
  Sender: FDA-Public Use
  Company Number: US-JNJFOC-20120810457

PATIENT
  Sex: Female
  Weight: 72.58 kg

DRUGS (6)
  1. DURAGESIC-12 [Suspect]
     Indication: PAIN
     Dosage: ABOUT 3 OR 4 YEARS AGO
     Route: 062
     Dates: end: 20120501
  2. FIORICET [Concomitant]
     Indication: PAIN
     Route: 065
     Dates: start: 20111101, end: 20120501
  3. NUCYNTA [Concomitant]
     Indication: PAIN
     Route: 048
     Dates: end: 20120501
  4. EXALGO [Suspect]
     Indication: PAIN
     Route: 048
     Dates: start: 20111101, end: 20120501
  5. ZETIA [Concomitant]
     Indication: CARDIAC DISORDER
     Route: 048
     Dates: end: 20120501
  6. COUMADIN [Concomitant]
     Indication: HEART VALVE REPLACEMENT
     Route: 048
     Dates: start: 20000101, end: 20120501

REACTIONS (8)
  - MIGRAINE [None]
  - PAIN [None]
  - CARDIAC FAILURE [None]
  - DRUG DOSE OMISSION [None]
  - UNRESPONSIVE TO STIMULI [None]
  - RESPIRATORY FAILURE [None]
  - WITHDRAWAL SYNDROME [None]
  - GRAND MAL CONVULSION [None]
